FAERS Safety Report 6689251-3 (Version None)
Quarter: 2010Q2

REPORT INFORMATION
  Report Type: 
  Country: None (occurrence: None)
  Receive Date: 20100420
  Receipt Date: 20100416
  Transmission Date: 20101027
  Serious: Yes (Hospitalization)
  Sender: FDA-Public Use
  Company Number: US-MERCK-0902USA00941

PATIENT
  Age: 61 Year
  Sex: Female
  Weight: 67 kg

DRUGS (3)
  1. FOSAMAX PLUS D [Suspect]
     Indication: OSTEOPOROSIS
     Route: 048
     Dates: start: 20060609, end: 20070202
  2. METFORMIN [Concomitant]
     Indication: DIABETES MELLITUS
     Route: 065
  3. FOSAMAX [Suspect]
     Route: 048

REACTIONS (18)
  - AXILLARY MASS [None]
  - BLOOD TRIGLYCERIDES INCREASED [None]
  - BONE DENSITY DECREASED [None]
  - CELLULITIS [None]
  - DEPRESSION [None]
  - GINGIVAL BLEEDING [None]
  - HEADACHE [None]
  - LOOSE TOOTH [None]
  - NODULE ON EXTREMITY [None]
  - OEDEMA MOUTH [None]
  - ORAL PAIN [None]
  - PERIODONTAL DISEASE [None]
  - POLYP [None]
  - SENSITIVITY OF TEETH [None]
  - SINUS DISORDER [None]
  - TOOTH DISORDER [None]
  - TOOTH INFECTION [None]
  - TOOTH LOSS [None]
